FAERS Safety Report 8028503-1 (Version None)
Quarter: 2012Q1

REPORT INFORMATION
  Report Type: 
  Country: None (occurrence: None)
  Receive Date: 20120106
  Receipt Date: 20111223
  Transmission Date: 20120608
  Serious: Yes (Other)
  Sender: FDA-Public Use
  Company Number: DK-UCBSA-047970

PATIENT
  Age: 69 Year
  Sex: Female

DRUGS (3)
  1. PREDNISOLONE [Concomitant]
     Dates: start: 20100411, end: 20110103
  2. METHOTREXATE [Concomitant]
     Dates: start: 20100311, end: 20110103
  3. CIMZIA [Suspect]
     Indication: RHEUMATOID ARTHRITIS
     Route: 058
     Dates: start: 20100819, end: 20110427

REACTIONS (4)
  - DYSPNOEA [None]
  - NAUSEA [None]
  - PYREXIA [None]
  - COUGH [None]
